FAERS Safety Report 5381773-0 (Version None)
Quarter: 2007Q2

REPORT INFORMATION
  Report Type: 
  Country: None (occurrence: None)
  Receive Date: 20070629
  Receipt Date: 20070321
  Transmission Date: 20071010
  Serious: Yes (Disabling, Other)
  Sender: FDA-Public Use
  Company Number: US200702002795

PATIENT
  Age: 71 Year
  Sex: Male

DRUGS (3)
  1. HUMALOG MIX 50/50 [Suspect]
     Indication: DIABETES MELLITUS
     Dosage: 60 U, EACH MORNING ; 60 U, EACH EVENING ; 60 U, OTHER
     Dates: start: 20060101
  2. NOVOLOG [Concomitant]
  3. NOVOLOG MIX 70/30 [Concomitant]

REACTIONS (11)
  - BLOOD GLUCOSE INCREASED [None]
  - DRUG INEFFECTIVE [None]
  - DYSPNOEA [None]
  - INJECTION SITE IRRITATION [None]
  - INJECTION SITE PAIN [None]
  - MONOPLEGIA [None]
  - MUSCULAR WEAKNESS [None]
  - NEUROPATHY [None]
  - PAIN IN EXTREMITY [None]
  - POLIOMYELITIS [None]
  - THERAPEUTIC RESPONSE DECREASED [None]
